FAERS Safety Report 10021418 (Version 1)
Quarter: 2014Q1

REPORT INFORMATION
  Report Type: Spontaneous
  Country: US (occurrence: US)
  Receive Date: 20140319
  Receipt Date: 20140319
  Transmission Date: 20141002
  Serious: No
  Sender: FDA-Public Use
  Company Number: US-LUNDBECK-DKLU1097714

PATIENT
  Sex: Male

DRUGS (2)
  1. ONFI [Suspect]
     Indication: CONVULSION
  2. KLONOPIN [Concomitant]
     Indication: CONVULSION

REACTIONS (3)
  - Dissociation [Unknown]
  - Thinking abnormal [Unknown]
  - Irritability [Unknown]
